FAERS Safety Report 5335387-9 (Version None)
Quarter: 2007Q2

REPORT INFORMATION
  Report Type: 
  Country: None (occurrence: None)
  Receive Date: 20070525
  Receipt Date: 20070514
  Transmission Date: 20071010
  Serious: Yes (Other)
  Sender: FDA-Public Use
  Company Number: CA-PFIZER INC-2007040047

PATIENT
  Age: 75 Year
  Sex: Male

DRUGS (6)
  1. LIPITOR [Suspect]
     Route: 048
  2. ASAPHEN [Concomitant]
  3. METOPROLOL SUCCINATE [Concomitant]
  4. PLAVIX [Concomitant]
  5. ALTACE [Concomitant]
  6. SYNTHROID [Concomitant]

REACTIONS (2)
  - MYALGIA [None]
  - MYOCARDIAL INFARCTION [None]
